FAERS Safety Report 6393193-0 (Version None)
Quarter: 2009Q4

REPORT INFORMATION
  Report Type: 
  Country: None (occurrence: None)
  Receive Date: 20091008
  Receipt Date: 20090923
  Transmission Date: 20100525
  Serious: Yes (Hospitalization)
  Sender: FDA-Public Use
  Company Number: DE-BRISTOL-MYERS SQUIBB COMPANY-14809537

PATIENT
  Age: 71 Year
  Sex: Male
  Weight: 84 kg

DRUGS (12)
  1. CETUXIMAB [Suspect]
     Indication: NON-SMALL CELL LUNG CANCER
     Route: 042
     Dates: start: 20090901
  2. CISPLATIN [Suspect]
     Indication: NON-SMALL CELL LUNG CANCER
     Route: 042
     Dates: start: 20090901
  3. ALIMTA [Suspect]
     Indication: NON-SMALL CELL LUNG CANCER
     Dosage: VIAL.
     Route: 042
     Dates: start: 20090901
  4. FOLIC ACID [Concomitant]
     Indication: PROPHYLAXIS
  5. VITAMIN B-12 [Concomitant]
     Indication: PROPHYLAXIS
  6. PANTOZOL [Concomitant]
     Dates: start: 20090909
  7. METOCLOPRAMIDE HYDROCHLORIDE [Concomitant]
     Indication: PROPHYLAXIS
     Dosage: DROP
     Dates: start: 20090909, end: 20090917
  8. TEPILTA [Concomitant]
     Indication: PROPHYLAXIS
     Dates: start: 20090909
  9. GLANDOSANE [Concomitant]
     Indication: PROPHYLAXIS
     Dates: start: 20090909
  10. DELTAJONIN [Concomitant]
     Indication: PROPHYLAXIS
     Dates: start: 20090908, end: 20090909
  11. VOMEX A [Concomitant]
     Indication: PROPHYLAXIS
     Dates: start: 20090908, end: 20090909
  12. FRAXIPARINE [Concomitant]
     Indication: PROPHYLAXIS
     Dates: start: 20090908

REACTIONS (4)
  - FATIGUE [None]
  - NEUTROPENIA [None]
  - RASH [None]
  - THROMBOCYTOPENIA [None]
